FAERS Safety Report 6085881-0 (Version None)
Quarter: 2009Q1

REPORT INFORMATION
  Report Type: 
  Country: None (occurrence: None)
  Receive Date: 20090220
  Receipt Date: 20090218
  Transmission Date: 20090719
  Serious: Yes (Other)
  Sender: FDA-Public Use
  Company Number: D0060581A

PATIENT
  Age: 52 Year
  Sex: Male

DRUGS (2)
  1. ARIXTRA [Suspect]
     Route: 065
  2. CLEXANE [Suspect]
     Route: 065
     Dates: start: 20090122

REACTIONS (1)
  - THROMBOSIS [None]
